FAERS Safety Report 24311222 (Version 1)
Quarter: 2024Q3

REPORT INFORMATION
  Report Type: Spontaneous
  Country: US (occurrence: US)
  Receive Date: 20240912
  Receipt Date: 20240912
  Transmission Date: 20241016
  Serious: No
  Sender: PAREXEL
  Company Number: US-NOVEN PHARMACEUTICALS, INC.-2024-NOV-US000015

PATIENT
  Age: 52 Year
  Sex: Female
  Weight: 89.796 kg

DRUGS (3)
  1. COMBIPATCH [Suspect]
     Active Substance: ESTRADIOL\NORETHINDRONE ACETATE
     Indication: Menopause
     Dosage: 0.05/0.14 MG, DOES NOT ALWAYS CHANGE THE PATCH EVERY 2-3 DAYS OR WORE AS LONG AS FIVE DAYS
     Route: 062
     Dates: start: 2023
  2. FLUVOXAMINE [Suspect]
     Active Substance: FLUVOXAMINE
     Indication: Depression
     Dosage: 200 MG, DAILY
     Route: 065
     Dates: start: 2023
  3. MYRBETRIQ [Suspect]
     Active Substance: MIRABEGRON
     Indication: Pollakiuria
     Dosage: 50 MG, DAILY
     Route: 065
     Dates: start: 2023

REACTIONS (5)
  - Pollakiuria [Unknown]
  - Breast tenderness [Unknown]
  - Vaginal haemorrhage [Unknown]
  - Product administered at inappropriate site [Not Recovered/Not Resolved]
  - Intentional product use issue [Not Recovered/Not Resolved]

NARRATIVE: CASE EVENT DATE: 20230101
